FAERS Safety Report 21189852 (Version 1)
Quarter: 2022Q3

REPORT INFORMATION
  Report Type: Spontaneous
  Country: US (occurrence: US)
  Receive Date: 20220809
  Receipt Date: 20220809
  Transmission Date: 20221027
  Serious: Yes (Other)
  Sender: FDA-Public Use
  Company Number: US-BAYER-2022A108971

PATIENT
  Age: 45 Year
  Sex: Male

DRUGS (12)
  1. ADEMPAS [Suspect]
     Active Substance: RIOCIGUAT
     Indication: Pulmonary hypertension
     Dosage: 2.5 MG, TID
     Route: 048
     Dates: start: 20220121, end: 20220629
  2. NARCO [Concomitant]
  3. HYDROMORPHONE [Concomitant]
     Active Substance: HYDROMORPHONE
  4. ENOXAPARIN [Concomitant]
     Active Substance: ENOXAPARIN
  5. SUMATRIPTAN SUCCINATE [Concomitant]
     Active Substance: SUMATRIPTAN SUCCINATE
  6. DIVALPROEX SODIUM [Concomitant]
     Active Substance: DIVALPROEX SODIUM
  7. SYMBICORT [Concomitant]
     Active Substance: BUDESONIDE\FORMOTEROL FUMARATE DIHYDRATE
  8. GABAPENTIN [Concomitant]
     Active Substance: GABAPENTIN
  9. ALLOPURINOL [Concomitant]
     Active Substance: ALLOPURINOL
  10. PRAVASTATIN [Concomitant]
     Active Substance: PRAVASTATIN
  11. PANTOPRAZOLE [Concomitant]
     Active Substance: PANTOPRAZOLE
  12. XYLOMETAZOLINE HYDROCHLORIDE [Concomitant]
     Active Substance: XYLOMETAZOLINE HYDROCHLORIDE

REACTIONS (2)
  - Drug ineffective [None]
  - Adverse event [None]
